FAERS Safety Report 21412522 (Version 1)
Quarter: 2022Q4

REPORT INFORMATION
  Report Type: Spontaneous
  Country: US (occurrence: US)
  Receive Date: 20221005
  Receipt Date: 20221005
  Transmission Date: 20230112
  Serious: No
  Sender: FDA-Public Use
  Company Number: US-INTRA-CELLULAR THERAPIES, INC.-2022ICT00911

PATIENT
  Age: 49 Year
  Sex: Female

DRUGS (4)
  1. CAPLYTA [Suspect]
     Active Substance: LUMATEPERONE
     Indication: Schizoaffective disorder
     Dosage: 1 TABLET 42 MG, 1X/DAY
     Route: 048
  2. CAPLYTA [Suspect]
     Active Substance: LUMATEPERONE
     Indication: Depression
  3. HYDROXYZINE HYDROCHLORIDE [Concomitant]
     Active Substance: HYDROXYZINE HYDROCHLORIDE
     Dosage: 10 MG, AS NEEDED AT BEDTIME
  4. SEROQUEL [Concomitant]
     Active Substance: QUETIAPINE FUMARATE
     Dosage: 25 MG, AS NEEDED AT BEDTIME

REACTIONS (2)
  - Headache [Recovered/Resolved]
  - Off label use [Recovered/Resolved]

NARRATIVE: CASE EVENT DATE: 20220101
